FAERS Safety Report 8485742-3 (Version None)
Quarter: 2012Q3

REPORT INFORMATION
  Report Type: 
  Country: None (occurrence: None)
  Receive Date: 20120703
  Receipt Date: 20120619
  Transmission Date: 20120928
  Serious: Yes (Hospitalization)
  Sender: FDA-Public Use
  Company Number: NL-ROCHE-1075253

PATIENT
  Sex: Male
  Weight: 88.5 kg

DRUGS (14)
  1. CYCLOPHOSPHAMIDE [Suspect]
     Indication: B-CELL LYMPHOMA
     Dosage: DATE OF LSAT DOSE PRIOR TO SAE: 16/MAY/2012
     Route: 042
     Dates: start: 20120516
  2. DOXORUBICIN HCL [Suspect]
     Indication: B-CELL LYMPHOMA
     Dosage: DATE OF LAST DOSE PRIOR TO SAE: 16/MAY/2012
     Route: 042
     Dates: start: 20120516
  3. NEULASTA [Suspect]
     Indication: B-CELL LYMPHOMA
     Dosage: DATE OF LAST DOSE PRIOR TO SAE: 17/MAY/2012
     Route: 058
     Dates: start: 20120517
  4. VINCRISTINE [Suspect]
     Indication: B-CELL LYMPHOMA
     Dosage: DATE OF LAST DOSE PRIOR TO SAE: 16/MAY/2012
     Route: 048
     Dates: start: 20120516
  5. LIPITOR [Concomitant]
     Indication: HYPERCHOLESTEROLAEMIA
     Route: 048
     Dates: start: 20000318, end: 20120601
  6. OXYCONTIN [Concomitant]
     Indication: PAIN
     Route: 048
     Dates: start: 20120223, end: 20120601
  7. MABTHERA [Suspect]
     Indication: B-CELL LYMPHOMA
     Dosage: DATE OF LAST DOSE PRIOR TO SAE: 16/MAY/2012
     Route: 042
     Dates: start: 20120516
  8. FUROSEMIDE [Concomitant]
     Indication: HYPERTENSION
     Route: 048
     Dates: start: 20120218, end: 20120601
  9. PREDNISONE TAB [Suspect]
     Indication: B-CELL LYMPHOMA
     Dosage: DATE OF LSATD OSE PRIOR TO SAE: 20/MAY/2012
     Route: 048
     Dates: start: 20120516
  10. ACETYLDIHYDROCODEINE HYDROCHLORIDE [Concomitant]
     Indication: PRODUCT USED FOR UNKNOWN INDICATION
     Dosage: DATE OF LAST DOSE PRIOR TO SAE: 20/JUN/2012
     Route: 048
     Dates: start: 20000318, end: 20120601
  11. TAMSULOSIN HYDROCHLORIDE [Concomitant]
     Indication: PROSTATIC DISORDER
     Route: 048
     Dates: start: 20120206, end: 20120601
  12. FORLAX (NETHERLANDS) [Concomitant]
     Indication: CONSTIPATION
     Route: 048
     Dates: start: 20120209, end: 20120601
  13. AMLODIPINE BESILATE/VALSARTAN [Concomitant]
     Indication: HYPERTENSION
     Route: 048
     Dates: start: 20120209, end: 20120601
  14. METOPROLOL SUCCINATE [Concomitant]
     Indication: HYPERTENSION
     Route: 048
     Dates: start: 20120223, end: 20120601

REACTIONS (1)
  - DEEP VEIN THROMBOSIS [None]
